FAERS Safety Report 4426315-9 (Version None)
Quarter: 2004Q3

REPORT INFORMATION
  Report Type: 
  Country: None (occurrence: None)
  Receive Date: 20040811
  Receipt Date: 20040804
  Transmission Date: 20050211
  Serious: Yes (Hospitalization)
  Sender: FDA-Public Use
  Company Number: K200401160

PATIENT
  Age: 75 Year
  Sex: Female

DRUGS (4)
  1. ALTACE [Suspect]
     Dosage: ORAL
     Route: 048
  2. FUROSEMIDE [Suspect]
     Dosage: ORAL
     Route: 048
  3. UNSPECIFIED MEDICATIONS [Concomitant]
  4. BISOPROLOL FUMARATE [Concomitant]

REACTIONS (2)
  - DEHYDRATION [None]
  - HYPONATRAEMIA [None]
